FAERS Safety Report 7009253-7 (Version None)
Quarter: 2010Q3

REPORT INFORMATION
  Report Type: 
  Country: None (occurrence: None)
  Receive Date: 20100923
  Receipt Date: 20100910
  Transmission Date: 20110219
  Serious: Yes (Hospitalization)
  Sender: FDA-Public Use
  Company Number: AU-SANOFI-AVENTIS-2010SA056549

PATIENT
  Age: 48 Year
  Sex: Female

DRUGS (15)
  1. ARAVA [Suspect]
     Route: 048
     Dates: start: 20050112, end: 20050809
  2. EFFEXOR [Suspect]
     Route: 048
     Dates: end: 20050809
  3. ALPRAZOLAM [Suspect]
     Route: 048
     Dates: end: 20050809
  4. ARTANE [Suspect]
     Route: 048
     Dates: end: 20050809
  5. KLACID [Suspect]
     Route: 048
     Dates: start: 20050731, end: 20050808
  6. METHOTREXATE [Suspect]
     Route: 048
     Dates: end: 20050809
  7. MOBIC [Suspect]
     Route: 048
     Dates: end: 20050809
  8. PLAQUENIL [Suspect]
     Route: 048
     Dates: start: 20011212, end: 20050809
  9. ZYPREXA [Suspect]
     Route: 048
     Dates: end: 20050809
  10. AMOXIL [Concomitant]
  11. MONOPLUS [Concomitant]
  12. FOLIC ACID [Concomitant]
  13. CENTRUM [Concomitant]
  14. OSTELIN [Concomitant]
  15. NEXIUM [Concomitant]

REACTIONS (1)
  - HEPATITIS FULMINANT [None]
